FAERS Safety Report 4909802-6 (Version None)
Quarter: 2006Q1

REPORT INFORMATION
  Report Type: 
  Country: None (occurrence: None)
  Receive Date: 20060213
  Receipt Date: 20060202
  Transmission Date: 20060701
  Serious: Yes (Other)
  Sender: FDA-Public Use
  Company Number: US-JNJFOC-20060200827

PATIENT
  Age: 18 Year
  Sex: Female

DRUGS (3)
  1. REMICADE [Suspect]
     Route: 042
  2. ASACOL [Concomitant]
  3. 6-MP [Concomitant]

REACTIONS (2)
  - HENOCH-SCHONLEIN PURPURA [None]
  - VITAMIN C DEFICIENCY [None]
